FAERS Safety Report 9018054 (Version 1)
Quarter: 2013Q1

REPORT INFORMATION
  Report Type: Spontaneous
  Country: US (occurrence: None)
  Receive Date: 20130110
  Receipt Date: 20130110
  Transmission Date: 20140127
  Serious: Yes (Life-Threatening, Other)
  Sender: FDA-Public Use
  Company Number: None

PATIENT
  Sex: Male
  Weight: 88 kg

DRUGS (1)
  1. ZALEPLON [Suspect]
     Indication: SLEEP DISORDER
     Dates: start: 20121220, end: 20121228

REACTIONS (4)
  - Dizziness [None]
  - Somnambulism [None]
  - Fall [None]
  - Tendonitis [None]
